FAERS Safety Report 6579655-1 (Version None)
Quarter: 2010Q1

REPORT INFORMATION
  Report Type: 
  Country: None (occurrence: None)
  Receive Date: 20100203
  Receipt Date: 20100118
  Transmission Date: 20100710
  Serious: Yes (Death)
  Sender: FDA-Public Use
  Company Number: B0627878A

PATIENT
  Age: 49 Year
  Sex: Male

DRUGS (10)
  1. QUETIAPINE [Suspect]
     Dosage: ORAL
     Route: 048
  2. BETA-BLOCKER (GENERIC) (BETA-BLOCKER) [Suspect]
     Dosage: ORAL
     Route: 048
  3. DIPHENHYDRAMINE (GENERIC) (DIPHENHYDRAMINE) [Suspect]
     Dosage: ORAL
     Route: 048
  4. BUPROPION HCL [Suspect]
     Dosage: ORAL
     Route: 048
  5. TOPIRAMATE [Suspect]
     Dosage: ORAL
     Route: 048
  6. LISINOPRIL [Suspect]
     Dosage: ORAL
     Route: 048
  7. TIZANIDINE HCL [Suspect]
     Dosage: ORAL
     Route: 048
  8. MIRTAZAPINE [Suspect]
     Dosage: ORAL
     Route: 048
  9. TAMSULOSIN HCL [Suspect]
     Dosage: ORAL
     Route: 048
  10. COCAINE (GENERIC) (COCAINE) [Suspect]
     Dosage: ORAL
     Route: 048

REACTIONS (2)
  - CARDIO-RESPIRATORY ARREST [None]
  - COMPLETED SUICIDE [None]
